FAERS Safety Report 4288987-1 (Version None)
Quarter: 2004Q1

REPORT INFORMATION
  Report Type: 
  Country: None (occurrence: None)
  Receive Date: 20040205
  Receipt Date: 20030219
  Transmission Date: 20041129
  Serious: Yes (Hospitalization)
  Sender: FDA-Public Use
  Company Number: ETHYOL-02158

PATIENT
  Age: 75 Year
  Sex: Male
  Weight: 72.5755 kg

DRUGS (12)
  1. ETHYOL [Suspect]
     Dosage: 500 MG, 5 IN 1 WK, SUBCUTANEOUS
     Route: 058
     Dates: start: 20021022, end: 20021112
  2. PREVACID [Concomitant]
  3. PAXIL [Concomitant]
  4. ZOFRAN [Concomitant]
  5. SENOKOT [Concomitant]
  6. TYLENOL W/ CODEINE [Concomitant]
  7. DIFLUCAN [Concomitant]
  8. CARDIZEM [Concomitant]
  9. HEPARIN [Concomitant]
  10. AMIODARONE HCL [Concomitant]
  11. DIGOXIN [Concomitant]
  12. LOPRESSOR [Concomitant]

REACTIONS (4)
  - ATRIAL FIBRILLATION [None]
  - DYSPNOEA [None]
  - NAUSEA [None]
  - VOMITING [None]
